FAERS Safety Report 5505083-3 (Version None)
Quarter: 2007Q4

REPORT INFORMATION
  Report Type: 
  Country: None (occurrence: None)
  Receive Date: 20071031
  Receipt Date: 20071031
  Transmission Date: 20080405
  Serious: Yes (Other)
  Sender: FDA-Public Use
  Company Number: None

PATIENT
  Age: 41 Year
  Sex: Male
  Weight: 77.5651 kg

DRUGS (1)
  1. BACTRIM DS [Suspect]
     Indication: PROSTATITIS
     Dosage: ONE  BID  PO
     Route: 048
     Dates: start: 20071017, end: 20071022

REACTIONS (4)
  - LIVER FUNCTION TEST ABNORMAL [None]
  - MYALGIA [None]
  - PYREXIA [None]
  - WHITE BLOOD CELL COUNT DECREASED [None]
